FAERS Safety Report 25101284 (Version 2)
Quarter: 2025Q1

REPORT INFORMATION
  Report Type: Spontaneous
  Country: US (occurrence: US)
  Receive Date: 20250320
  Receipt Date: 20250328
  Transmission Date: 20250409
  Serious: No
  Sender: NOVARTIS
  Company Number: US-002147023-NVSC2025US045541

PATIENT
  Sex: Female

DRUGS (1)
  1. LEQVIO [Suspect]
     Active Substance: INCLISIRAN SODIUM
     Indication: Product used for unknown indication
     Route: 065

REACTIONS (5)
  - Fibromyalgia [Unknown]
  - Cough [Unknown]
  - Urinary tract infection [Unknown]
  - Arthralgia [Unknown]
  - Glycosylated haemoglobin increased [Unknown]
